FAERS Safety Report 11317557 (Version 1)
Quarter: 2015Q3

REPORT INFORMATION
  Report Type: Spontaneous
  Country: IT (occurrence: IT)
  Receive Date: 20150728
  Receipt Date: 20150728
  Transmission Date: 20151125
  Serious: Yes (Life-Threatening)
  Sender: FDA-Public Use
  Company Number: IT-BAYER-2015-388086

PATIENT
  Age: 85 Year
  Sex: Male

DRUGS (1)
  1. CARDIOASPIRIN [Suspect]
     Active Substance: ASPIRIN
     Indication: CAROTID ARTERY DISEASE
     Dosage: D100 MG, QD
     Dates: start: 20120101

REACTIONS (1)
  - Cerebral haemorrhage [Unknown]

NARRATIVE: CASE EVENT DATE: 20150722
